FAERS Safety Report 5767642-2 (Version None)
Quarter: 2008Q2

REPORT INFORMATION
  Report Type: 
  Country: None (occurrence: None)
  Receive Date: 20080612
  Receipt Date: 20080603
  Transmission Date: 20081010
  Serious: Yes (Other)
  Sender: FDA-Public Use
  Company Number: US-NOVOPROD-274148

PATIENT
  Sex: Male
  Weight: 57 kg

DRUGS (3)
  1. NORDITROPIN NORDIFLEX [Suspect]
     Indication: HAEMODIALYSIS
     Dosage: 1.2 MG, QD
     Route: 058
     Dates: start: 20080326
  2. NORDITROPIN NORDIFLEX [Suspect]
     Indication: RENAL FAILURE CHRONIC
  3. GLIPIZIDE [Concomitant]
     Indication: DIABETES MELLITUS
     Dosage: 20 MG, UNK
     Route: 048
     Dates: start: 20080123, end: 20080409

REACTIONS (1)
  - HYPERGLYCAEMIA [None]
